FAERS Safety Report 9123383 (Version 2)
Quarter: 2013Q1

REPORT INFORMATION
  Report Type: Report from Study
  Country: US (occurrence: US)
  Receive Date: 20130107
  Receipt Date: 20130107
  Transmission Date: 20140127
  Serious: Yes (Hospitalization)
  Sender: FDA-Public Use
  Company Number: US-BRISTOL-MYERS SQUIBB COMPANY-17239229

PATIENT
  Age: 64 Year
  Sex: Male

DRUGS (11)
  1. BLINDED: SAXAGLIPTIN [Suspect]
     Indication: TYPE 2 DIABETES MELLITUS
     Dates: start: 20100726
  2. METFORMIN HCL [Suspect]
     Indication: TYPE 2 DIABETES MELLITUS
     Dosage: 2000IU: UNK-29SEP10, 2500MG:08OCT10-12JUN12, 15JUN12-12JUL12, 15JUL12-ONG.
  3. NOVOLIN 70/30 [Suspect]
     Indication: TYPE 2 DIABETES MELLITUS
     Dosage: 180IU/U:15JUN12-11JUL12, 15JUL12-ONG.
     Dates: start: 20120615
  4. BLINDED: PLACEBO [Suspect]
     Indication: TYPE 2 DIABETES MELLITUS
     Dates: start: 20100726
  5. METOPROLOL TARTRATE [Suspect]
  6. IMDUR [Suspect]
     Dates: start: 20110421
  7. NITROGLYCERIN [Concomitant]
     Dosage: 1DF:01UNITS
     Dates: start: 20110420
  8. DIOVAN [Concomitant]
     Dosage: STOP ON 20JUL11-22DE11 40MG
     Dates: start: 20111208
  9. ASPIRIN [Concomitant]
  10. GABAPENTIN [Concomitant]
     Dates: start: 20120614
  11. REGULAR INSULIN [Concomitant]
     Dosage: 1DF:14UNITS
     Dates: start: 20120614

REACTIONS (1)
  - Presyncope [Recovered/Resolved]
